FAERS Safety Report 9166913 (Version 1)
Quarter: 2013Q1

REPORT INFORMATION
  Report Type: Spontaneous
  Country: AU (occurrence: AU)
  Receive Date: 20130318
  Receipt Date: 20130318
  Transmission Date: 20140127
  Serious: Yes (Other)
  Sender: FDA-Public Use
  Company Number: PHHY2013AU002160

PATIENT
  Age: 45 Year
  Sex: Female

DRUGS (9)
  1. VALPROIC ACID [Suspect]
     Dosage: 2.5 G, DAILY
  2. VALPROIC ACID [Interacting]
     Dosage: UNK
  3. QUETIAPINE [Interacting]
     Dosage: 200 MG, DAILY
  4. LITHIUM [Concomitant]
     Dosage: 650 MG, DAILY
  5. DIAZEPAM [Concomitant]
     Dosage: 7.5 MG, DAILY
  6. VENLAFAXINE [Concomitant]
     Dosage: 300 MG, DAILY
  7. THYROXINE [Concomitant]
     Dosage: 50 UG, DAILY
  8. MORPHINE [Concomitant]
     Dosage: 600 MG, DAILY
  9. ROSUVASTATIN [Concomitant]
     Dosage: 10 MG, DAILY

REACTIONS (2)
  - Oedema peripheral [Recovered/Resolved]
  - Drug interaction [Unknown]
